FAERS Safety Report 15138159 (Version 4)
Quarter: 2018Q4

REPORT INFORMATION
  Report Type: Spontaneous
  Country: DE (occurrence: DE)
  Receive Date: 20180713
  Receipt Date: 20181011
  Transmission Date: 20190204
  Serious: Yes (Hospitalization, Other)
  Sender: FDA-Public Use
  Company Number: DE-DRREDDYS-GER/GER/18/0101685

PATIENT
  Age: 35 Year
  Sex: Male

DRUGS (2)
  1. IBUPROFEN. [Suspect]
     Active Substance: IBUPROFEN
     Indication: PAIN
     Dosage: DAILY DOSE: 800 MG MILLGRAM(S) EVERY DAYS
     Route: 048
     Dates: start: 2015, end: 201804
  2. DICLOFENAC [Suspect]
     Active Substance: DICLOFENAC
     Indication: PAIN
     Dosage: DAILY DOSE: 75 MG MILLGRAM(S) EVERY DAYS
     Route: 048
     Dates: start: 2015, end: 201804

REACTIONS (2)
  - Renal failure [Recovering/Resolving]
  - Tubulointerstitial nephritis [Recovering/Resolving]

NARRATIVE: CASE EVENT DATE: 201804
